FAERS Safety Report 4463413-8 (Version None)
Quarter: 2004Q3

REPORT INFORMATION
  Report Type: 
  Country: None (occurrence: None)
  Receive Date: 20040928
  Receipt Date: 20040915
  Transmission Date: 20050211
  Serious: Yes (Hospitalization)
  Sender: FDA-Public Use
  Company Number: HQWYE118220SEP04

PATIENT
  Sex: Male

DRUGS (6)
  1. EFFEXOR XR [Suspect]
     Indication: DEPRESSION
     Dosage: SEE IMAGE
     Route: 064
     Dates: start: 20010801
  2. EFFEXOR XR [Suspect]
     Indication: PANIC ATTACK
     Dosage: SEE IMAGE
     Route: 064
     Dates: start: 20010801
  3. DARVOCET-N (DEXTROPROPOXYPHENE/PARACETAMOL) [Concomitant]
  4. TYLENOL [Concomitant]
  5. AZITHROMYCIN [Concomitant]
  6. UNSPECIFIED ANTIBIOTIC (UNSPECIFIED ANTIBIOTIC) [Concomitant]

REACTIONS (4)
  - CONVULSION NEONATAL [None]
  - DRUG EXPOSURE DURING PREGNANCY [None]
  - NEONATAL RESPIRATORY DISTRESS SYNDROME [None]
  - PREMATURE BABY [None]
